FAERS Safety Report 11423351 (Version 1)
Quarter: 2015Q3

REPORT INFORMATION
  Report Type: Spontaneous
  Country: US (occurrence: US)
  Receive Date: 20150827
  Receipt Date: 20150827
  Transmission Date: 20151125
  Serious: No
  Sender: FDA-Public Use
  Company Number: US-MYLANLABS-2014M1004140

PATIENT
  Age: 89 Year
  Sex: Female
  Weight: 68.27 kg

DRUGS (1)
  1. CLONIDINE TRANSDERMAL SYSTEM [Suspect]
     Active Substance: CLONIDINE
     Dosage: 0.2 MG, QD, CHANGES Q.W.
     Route: 062
     Dates: start: 201407

REACTIONS (2)
  - Application site pruritus [Not Recovered/Not Resolved]
  - Application site rash [Not Recovered/Not Resolved]

NARRATIVE: CASE EVENT DATE: 201407
